FAERS Safety Report 4722917-0 (Version None)
Quarter: 2005Q3

REPORT INFORMATION
  Report Type: 
  Country: None (occurrence: None)
  Receive Date: 20050722
  Receipt Date: 20050713
  Transmission Date: 20060218
  Serious: Yes (Hospitalization, Other)
  Sender: FDA-Public Use
  Company Number: FI-ABBOTT-05P-055-0305791-00

PATIENT
  Sex: Female

DRUGS (7)
  1. HUMIRA [Suspect]
     Indication: JUVENILE ARTHRITIS
     Route: 058
     Dates: start: 20040101, end: 20050401
  2. PREDNISOLONE [Concomitant]
     Indication: JUVENILE ARTHRITIS
     Route: 048
  3. NALTREXONE HYDROCHLORIDE [Concomitant]
     Indication: JUVENILE ARTHRITIS
     Route: 048
     Dates: end: 20050401
  4. AZATHIOPRINE [Concomitant]
     Indication: JUVENILE ARTHRITIS
     Route: 048
     Dates: start: 20050301, end: 20050401
  5. HYDROXYCHLOROQUINE SULFATE [Concomitant]
     Indication: JUVENILE ARTHRITIS
     Route: 048
     Dates: end: 20050401
  6. LEKOVIT CA [Concomitant]
     Indication: JUVENILE ARTHRITIS
     Route: 048
  7. DITRIM [Concomitant]
     Indication: INFECTION PROPHYLAXIS
     Route: 048

REACTIONS (4)
  - CONVULSION [None]
  - EPILEPSY [None]
  - MYCOBACTERIUM AVIUM COMPLEX INFECTION [None]
  - PYREXIA [None]
